FAERS Safety Report 15452276 (Version 1)
Quarter: 2018Q4

REPORT INFORMATION
  Report Type: Spontaneous
  Country: RO (occurrence: RO)
  Receive Date: 20181001
  Receipt Date: 20181001
  Transmission Date: 20190204
  Serious: Yes (Hospitalization)
  Sender: FDA-Public Use
  Company Number: RO-TEVA-2018-RO-960018

PATIENT
  Age: 10 Year
  Sex: Male

DRUGS (3)
  1. SERTRALINE [Suspect]
     Active Substance: SERTRALINE HYDROCHLORIDE
     Dosage: 1/4 DAILY
  2. SERTRALINE [Suspect]
     Active Substance: SERTRALINE HYDROCHLORIDE
     Dosage: 25 MILLIGRAM DAILY;
  3. ALPRAZOLAM. [Suspect]
     Active Substance: ALPRAZOLAM
     Dosage: 1/2-1/2-1/2 TABLETS/DAILY

REACTIONS (8)
  - Hallucinations, mixed [Recovered/Resolved]
  - Abnormal behaviour [Unknown]
  - Irritability [Unknown]
  - Aggression [Unknown]
  - Tic [Unknown]
  - Anxiety [Recovering/Resolving]
  - Affect lability [Unknown]
  - Psychotic disorder [Unknown]
